FAERS Safety Report 19453794 (Version 9)
Quarter: 2022Q1

REPORT INFORMATION
  Report Type: Report from Study
  Country: ES (occurrence: ES)
  Receive Date: 20210623
  Receipt Date: 20220209
  Transmission Date: 20220423
  Serious: Yes (Other)
  Sender: FDA-Public Use
  Company Number: ES-ABBVIE-21K-144-3961542-00

PATIENT
  Sex: Male

DRUGS (3)
  1. CARBIDOPA\LEVODOPA [Suspect]
     Active Substance: CARBIDOPA\LEVODOPA
     Indication: Parkinson^s disease
     Route: 050
     Dates: start: 20180927, end: 20210622
  2. CARBIDOPA\LEVODOPA [Suspect]
     Active Substance: CARBIDOPA\LEVODOPA
     Dosage: DECREASE THE CONTINUOUS DOSE 0.4 ML/H
     Route: 050
     Dates: start: 20210622, end: 20210628
  3. CARBIDOPA\LEVODOPA [Suspect]
     Active Substance: CARBIDOPA\LEVODOPA
     Dosage: LOWER THE MORNING DOSE.
     Route: 050
     Dates: start: 20210628

REACTIONS (17)
  - Fall [Recovered/Resolved]
  - Disorientation [Recovered/Resolved]
  - Head injury [Recovered/Resolved]
  - Bone marrow oedema [Recovered/Resolved]
  - Traumatic haematoma [Recovered/Resolved]
  - Incorrect dose administered [Unknown]
  - Impulse-control disorder [Recovered/Resolved]
  - Anger [Recovered/Resolved]
  - Hypersexuality [Recovered/Resolved]
  - General physical health deterioration [Unknown]
  - Foot deformity [Recovered/Resolved]
  - Aggression [Unknown]
  - Motor dysfunction [Unknown]
  - Obsessive thoughts [Unknown]
  - Unevaluable event [Recovered/Resolved]
  - Dizziness [Recovered/Resolved]
  - Hallucinations, mixed [Recovered/Resolved]

NARRATIVE: CASE EVENT DATE: 20210101
